FAERS Safety Report 12715880 (Version 1)
Quarter: 2016Q3

REPORT INFORMATION
  Report Type: Spontaneous
  Country: US (occurrence: US)
  Receive Date: 20160906
  Receipt Date: 20160906
  Transmission Date: 20161109
  Serious: No
  Sender: FDA-Public Use
  Company Number: US-BAYER-2016-171668

PATIENT
  Age: 93 Year
  Sex: Male
  Weight: 78 kg

DRUGS (5)
  1. BENEFIBER [Concomitant]
     Active Substance: STARCH, WHEAT
     Dosage: IN THE AFTERNOONS
  2. TEMAZEPAM. [Concomitant]
     Active Substance: TEMAZEPAM
  3. SELENOR [SELENIUM] [Concomitant]
  4. MELATONIN [Concomitant]
     Active Substance: MELATONIN
  5. MIRALAX [Suspect]
     Active Substance: POLYETHYLENE GLYCOL 3350
     Indication: GASTROINTESTINAL DISORDER
     Dosage: 1 DF, QD
     Route: 048
     Dates: start: 20160531, end: 20160901

REACTIONS (2)
  - Product use issue [None]
  - Middle insomnia [Not Recovered/Not Resolved]

NARRATIVE: CASE EVENT DATE: 20160531
